FAERS Safety Report 5597135-7 (Version None)
Quarter: 2008Q1

REPORT INFORMATION
  Report Type: 
  Country: None (occurrence: None)
  Receive Date: 20080121
  Receipt Date: 20080109
  Transmission Date: 20080703
  Serious: Yes (Hospitalization, Other)
  Sender: FDA-Public Use
  Company Number: PHHY2008CA00557

PATIENT
  Age: 90 Year
  Sex: Female

DRUGS (5)
  1. DIOVAN [Suspect]
     Indication: HYPERTENSION
     Dosage: 160/25 MG
     Route: 048
     Dates: start: 20070925, end: 20071013
  2. ADALAT [Suspect]
     Indication: HYPERTENSION
     Dosage: 60 MG
     Route: 048
     Dates: start: 20070925, end: 20071013
  3. ASAPHEN [Concomitant]
  4. SERAX [Concomitant]
  5. VITAMIN B-12 [Concomitant]

REACTIONS (3)
  - ASTHENIA [None]
  - AUTONOMIC NERVOUS SYSTEM IMBALANCE [None]
  - ORTHOSTATIC HYPOTENSION [None]
